FAERS Safety Report 9473188 (Version 2)
Quarter: 2013Q3

REPORT INFORMATION
  Report Type: Spontaneous
  Country: US (occurrence: US)
  Receive Date: 20130823
  Receipt Date: 20130823
  Transmission Date: 20140515
  Serious: Yes (Hospitalization, Other)
  Sender: FDA-Public Use
  Company Number: US-BRISTOL-MYERS SQUIBB COMPANY-18737478

PATIENT
  Age: 80 Year
  Sex: Male

DRUGS (13)
  1. SPRYCEL [Suspect]
     Indication: LEUKAEMIA
     Dates: start: 20130318
  2. PROCHLORPERAZINE [Suspect]
  3. PLAVIX [Concomitant]
     Route: 048
  4. RANEXA [Concomitant]
     Indication: ANGINA PECTORIS
     Route: 048
  5. ASPIRIN [Concomitant]
     Route: 048
  6. HYDRAZINE SULFATE [Concomitant]
     Route: 048
  7. TAMSULOSIN [Concomitant]
     Route: 048
  8. LIPITOR [Concomitant]
     Dosage: EVERY NIGHT
     Route: 048
  9. CAPTOPRIL [Concomitant]
     Route: 048
  10. TOPROL XL [Concomitant]
     Route: 048
  11. SPIRIVA [Concomitant]
     Dosage: 1DF=1 CAPSULE -18MCG AT NIGHT
  12. SYMBICORT [Concomitant]
     Dosage: 1DF=2 PUFFS?STRENGTH:160/4.5 UNITS NOS
     Route: 055
  13. LANTUS [Concomitant]
     Dosage: 1DF=15 UNITS EVERY NIGHT AT 9AM
     Route: 058

REACTIONS (4)
  - Myocardial infarction [Unknown]
  - Nausea [Unknown]
  - Abdominal discomfort [Unknown]
  - Hypoacusis [Unknown]
